FAERS Safety Report 10615507 (Version 2)
Quarter: 2015Q1

REPORT INFORMATION
  Report Type: Spontaneous
  Country: US (occurrence: US)
  Receive Date: 20141201
  Receipt Date: 20150112
  Transmission Date: 20150720
  Serious: No
  Sender: FDA-Public Use
  Company Number: US-PFIZER INC-2014325509

PATIENT
  Age: 44 Year
  Sex: Female

DRUGS (2)
  1. LYRICA [Suspect]
     Active Substance: PREGABALIN
     Indication: FIBROMYALGIA
     Dosage: 100 MG, 2X/DAY
     Route: 048
     Dates: start: 20141028, end: 20141107
  2. LYRICA [Suspect]
     Active Substance: PREGABALIN
     Dosage: 50 MG, UNK FOR 5 NIGHTS THEN TWICE A DAY
     Dates: start: 20140923

REACTIONS (4)
  - Peripheral swelling [Unknown]
  - Vision blurred [Recovered/Resolved]
  - Swelling face [Unknown]
  - Abdominal distension [Unknown]

NARRATIVE: CASE EVENT DATE: 20141028
